FAERS Safety Report 10218772 (Version 1)
Quarter: 2014Q2

REPORT INFORMATION
  Report Type: Spontaneous
  Country: US (occurrence: None)
  Receive Date: 20140604
  Receipt Date: 20140604
  Transmission Date: 20141212
  Serious: Yes (Other)
  Sender: FDA-Public Use
  Company Number: None

PATIENT
  Age: 63 Year
  Sex: Female

DRUGS (1)
  1. TEMOZOLOMIDE [Suspect]
     Indication: BRAIN NEOPLASM MALIGNANT
     Route: 048
     Dates: start: 20140510, end: 20140514

REACTIONS (5)
  - Rash [None]
  - Melanocytic naevus [None]
  - Haemorrhage [None]
  - Reaction to drug excipients [None]
  - Product substitution issue [None]
